FAERS Safety Report 5511786-7 (Version None)
Quarter: 2007Q4

REPORT INFORMATION
  Report Type: 
  Country: None (occurrence: None)
  Receive Date: 20071109
  Receipt Date: 20071030
  Transmission Date: 20080405
  Serious: Yes (Death, Hospitalization)
  Sender: FDA-Public Use
  Company Number: US-GENENTECH-250583

PATIENT
  Age: 62 Year
  Sex: Female
  Weight: 48.72 kg

DRUGS (5)
  1. AVASTIN [Suspect]
     Indication: NON-SMALL CELL LUNG CANCER
     Dosage: UNK, Q3W
     Dates: start: 20070207, end: 20070530
  2. VELCADE [Suspect]
     Indication: NON-SMALL CELL LUNG CANCER
     Dosage: 1.3 MG/M2, Q3W
     Route: 041
     Dates: start: 20070207, end: 20070530
  3. CARBOPLATIN [Concomitant]
     Indication: NON-SMALL CELL LUNG CANCER
     Dosage: UNK, Q3W
     Dates: start: 20070207
  4. ALIMTA [Concomitant]
     Indication: NON-SMALL CELL LUNG CANCER
  5. GEMCITABINE [Concomitant]
     Indication: NON-SMALL CELL LUNG CANCER

REACTIONS (4)
  - NON-SMALL CELL LUNG CANCER [None]
  - PNEUMONIA [None]
  - PULMONARY OEDEMA [None]
  - RESPIRATORY DISTRESS [None]
